FAERS Safety Report 20642961 (Version 1)
Quarter: 2022Q1

REPORT INFORMATION
  Report Type: Report from Study
  Country: US (occurrence: US)
  Receive Date: 20220328
  Receipt Date: 20220328
  Transmission Date: 20220423
  Serious: Yes (Hospitalization)
  Sender: FDA-Public Use
  Company Number: US-Accord-258204

PATIENT
  Sex: Male

DRUGS (1)
  1. CLOZAPINE [Suspect]
     Active Substance: CLOZAPINE
     Indication: Mental disorder
     Dosage: 100 MG/ Q.A.M., 150 MG/  QHS
     Route: 048

REACTIONS (1)
  - Neutrophilia [Unknown]
